FAERS Safety Report 5941269-1 (Version None)
Quarter: 2008Q4

REPORT INFORMATION
  Report Type: 
  Country: None (occurrence: None)
  Receive Date: 20081103
  Receipt Date: 20081103
  Transmission Date: 20090506
  Serious: Yes (Life-Threatening, Hospitalization)
  Sender: FDA-Public Use
  Company Number: None

PATIENT
  Age: 51 Year
  Sex: Female
  Weight: 58.9676 kg

DRUGS (2)
  1. LAMOTRIGINE [Suspect]
     Indication: BIPOLAR II DISORDER
     Dosage: 25MG TWICE DAILY PO
     Route: 048
     Dates: start: 20080405, end: 20080415
  2. LAMOTRIGINE [Suspect]
     Indication: MANIA
     Dosage: 25MG TWICE DAILY PO
     Route: 048
     Dates: start: 20080405, end: 20080415

REACTIONS (8)
  - BALANCE DISORDER [None]
  - DYSPHAGIA [None]
  - FATIGUE [None]
  - IMMUNE SYSTEM DISORDER [None]
  - INFECTION SUSCEPTIBILITY INCREASED [None]
  - MOTOR DYSFUNCTION [None]
  - TOXIC EPIDERMAL NECROLYSIS [None]
  - VISUAL ACUITY REDUCED [None]
